FAERS Safety Report 8594899-5 (Version None)
Quarter: 2012Q3

REPORT INFORMATION
  Report Type: 
  Country: None (occurrence: None)
  Receive Date: 20120815
  Receipt Date: 20120807
  Transmission Date: 20120928
  Serious: Yes (Other)
  Sender: FDA-Public Use
  Company Number: US-BAYER-2012-080597

PATIENT
  Sex: Female

DRUGS (1)
  1. MIRENA [Suspect]
     Dosage: 20 MCG/24HR, CONT
     Route: 015
     Dates: start: 20120725

REACTIONS (9)
  - PROCEDURAL PAIN [None]
  - ADNEXA UTERI PAIN [None]
  - MALAISE [None]
  - HYPERHIDROSIS [None]
  - PARAESTHESIA [None]
  - VAGINAL HAEMORRHAGE [None]
  - FEELING HOT [None]
  - FREQUENT BOWEL MOVEMENTS [None]
  - PALPITATIONS [None]
